FAERS Safety Report 7318342-9 (Version None)
Quarter: 2011Q1

REPORT INFORMATION
  Report Type: 
  Country: None (occurrence: None)
  Receive Date: 20110218
  Receipt Date: 20110218
  Transmission Date: 20110831
  Serious: Yes (Hospitalization)
  Sender: FDA-Public Use
  Company Number: None

PATIENT
  Age: 32 Year
  Sex: Female

DRUGS (5)
  1. NORCO [Concomitant]
  2. MORPHINE [Suspect]
     Indication: CHOLELITHIASIS
     Dosage: IV RECENT
     Route: 042
  3. MORPHINE [Suspect]
     Indication: CHOLECYSTITIS
     Dosage: IV RECENT
     Route: 042
  4. MORPHINE [Suspect]
     Indication: CHOLECYSTITIS
     Dosage: 2 MG ONCE IV RECENT
     Route: 042
  5. MORPHINE [Suspect]
     Indication: CHOLELITHIASIS
     Dosage: 2 MG ONCE IV RECENT
     Route: 042

REACTIONS (5)
  - UNRESPONSIVE TO STIMULI [None]
  - PHARYNGEAL OEDEMA [None]
  - FEELING ABNORMAL [None]
  - DYSPNOEA [None]
  - DRY THROAT [None]
